FAERS Safety Report 5802892-8 (Version None)
Quarter: 2008Q3

REPORT INFORMATION
  Report Type: 
  Country: None (occurrence: None)
  Receive Date: 20080708
  Receipt Date: 20080703
  Transmission Date: 20090109
  Serious: Yes (Hospitalization)
  Sender: FDA-Public Use
  Company Number: FR-WYE-G01809808

PATIENT
  Age: 72 Year
  Sex: Male

DRUGS (3)
  1. RHINADVIL [Suspect]
     Dosage: UNKNOWN
     Route: 048
     Dates: start: 20080401, end: 20080401
  2. RHINADVIL [Suspect]
     Dosage: 3 TABLETS TOTAL DAILY
     Route: 048
     Dates: start: 20080626, end: 20080627
  3. PREVISCAN [Concomitant]
     Dosage: UNKNOWN
     Route: 048

REACTIONS (3)
  - MEDICATION ERROR [None]
  - MOUTH INJURY [None]
  - TONGUE HAEMORRHAGE [None]
